FAERS Safety Report 15190143 (Version 2)
Quarter: 2018Q3

REPORT INFORMATION
  Report Type: Spontaneous
  Country: US (occurrence: US)
  Receive Date: 20180724
  Receipt Date: 20180829
  Transmission Date: 20181010
  Serious: Yes (Hospitalization, Other)
  Sender: FDA-Public Use
  Company Number: US-ENDO PHARMACEUTICALS INC-2018-040169

PATIENT
  Age: 18 Year
  Sex: Male
  Weight: 70.3 kg

DRUGS (4)
  1. XIAFLEX [Suspect]
     Active Substance: COLLAGENASE CLOSTRIDIUM HISTOLYTICUM
     Dosage: 0.9 MG, CYCLE 2, INJECTION 1
     Route: 026
     Dates: start: 20180626
  2. XIAFLEX [Suspect]
     Active Substance: COLLAGENASE CLOSTRIDIUM HISTOLYTICUM
     Dosage: 0.9 MG, CYCLE 1, INJECTION 1
     Route: 026
     Dates: start: 20180507
  3. XIAFLEX [Suspect]
     Active Substance: COLLAGENASE CLOSTRIDIUM HISTOLYTICUM
     Indication: PEYRONIE^S DISEASE
     Dosage: 0.9 MG, CYCLE 2, INJECTION 2
     Route: 026
     Dates: start: 20180627, end: 20180627
  4. XIAFLEX [Suspect]
     Active Substance: COLLAGENASE CLOSTRIDIUM HISTOLYTICUM
     Dosage: 0.9 MG, CYCLE 1, INJECTION 2
     Route: 026
     Dates: start: 20180514

REACTIONS (3)
  - Fracture of penis [Recovering/Resolving]
  - Inappropriate schedule of drug administration [Recovered/Resolved]
  - Corpora cavernosa surgery [Recovered/Resolved]

NARRATIVE: CASE EVENT DATE: 201805
